FAERS Safety Report 12009675 (Version 2)
Quarter: 2016Q3

REPORT INFORMATION
  Report Type: Spontaneous
  Country: US (occurrence: US)
  Receive Date: 20160205
  Receipt Date: 20160712
  Transmission Date: 20161109
  Serious: Yes (Hospitalization, Other)
  Sender: FDA-Public Use
  Company Number: US-PFIZER INC-2016066559

PATIENT
  Age: 75 Year
  Sex: Male

DRUGS (2)
  1. DEPO-TESTOSTERONE [Suspect]
     Active Substance: TESTOSTERONE CYPIONATE
     Indication: HORMONE REPLACEMENT THERAPY
     Dosage: UNK
     Dates: start: 201303, end: 201309
  2. NORVASC [Concomitant]
     Active Substance: AMLODIPINE BESYLATE
     Indication: HYPERTENSION
     Dosage: 5 MG, AS NEEDED
     Dates: start: 2009

REACTIONS (11)
  - Disturbance in attention [Not Recovered/Not Resolved]
  - Myocardial infarction [Unknown]
  - Cognitive disorder [Not Recovered/Not Resolved]
  - Disorientation [Unknown]
  - Cerebrovascular accident [Unknown]
  - Vision blurred [Unknown]
  - Balance disorder [Not Recovered/Not Resolved]
  - Brain injury [Unknown]
  - Depression [Not Recovered/Not Resolved]
  - Dementia [Unknown]
  - Impaired driving ability [Not Recovered/Not Resolved]

NARRATIVE: CASE EVENT DATE: 20131030
